FAERS Safety Report 17472745 (Version 1)
Quarter: 2020Q1

REPORT INFORMATION
  Report Type: Spontaneous
  Country: US (occurrence: US)
  Receive Date: 20200218
  Receipt Date: 20200218
  Transmission Date: 20200409
  Serious: Yes (Other)
  Sender: FDA-Public Use
  Company Number: None

PATIENT
  Age: 76 Year
  Sex: Female
  Weight: 61.24 kg

DRUGS (1)
  1. AMOXICILLIN/CLAVULANATE [Suspect]
     Active Substance: AMOXICILLIN\CLAVULANATE POTASSIUM
     Indication: PNEUMONIA
     Dosage: 3/15 - 3/16 (3 X)
     Route: 048

REACTIONS (2)
  - Abdominal pain [None]
  - Dyspnoea [None]

NARRATIVE: CASE EVENT DATE: 20190316
